FAERS Safety Report 24058783 (Version 2)
Quarter: 2024Q3

REPORT INFORMATION
  Report Type: Report from Study
  Country: DE (occurrence: DE)
  Receive Date: 20240708
  Receipt Date: 20240917
  Transmission Date: 20241016
  Serious: Yes (Hospitalization, Other)
  Sender: NORDIC PHARMA
  Company Number: DE-UCBSA-2023048669

PATIENT
  Sex: Female

DRUGS (5)
  1. METHOTREXATE SODIUM [Suspect]
     Active Substance: METHOTREXATE SODIUM
     Indication: Product used for unknown indication
     Dosage: 15 MILLIGRAM, WEEKLY (QW)
     Dates: end: 202312
  2. CERTOLIZUMAB PEGOL [Concomitant]
     Active Substance: CERTOLIZUMAB PEGOL
     Indication: Product used for unknown indication
     Dosage: 200 MILLIGRAM, EV 2 WEEKS(QOW)
     Dates: end: 20231215
  3. DEKRISTOL [COLECALCIFEROL] [Concomitant]
  4. FOLIC ACID [FOLIC ACID] [Concomitant]
  5. LEVOTHYROXINE [LEVOTHYROXINE] [Concomitant]
     Indication: Product used for unknown indication
     Route: 065

REACTIONS (6)
  - Oral herpes [Recovered/Resolved]
  - Rheumatoid arthritis [Recovered/Resolved]
  - Fatigue [Unknown]
  - Pain [Unknown]
  - Upper respiratory tract infection [Recovered/Resolved]
  - Depression [Unknown]

NARRATIVE: CASE EVENT DATE: 20221201
